FAERS Safety Report 13996907 (Version 3)
Quarter: 2017Q4

REPORT INFORMATION
  Report Type: Spontaneous
  Country: US (occurrence: US)
  Receive Date: 20170921
  Receipt Date: 20171120
  Transmission Date: 20180321
  Serious: Yes (Death, Other)
  Sender: FDA-Public Use
  Company Number: US-PFIZER INC-2017404423

PATIENT
  Age: 89 Year
  Sex: Male
  Weight: 64 kg

DRUGS (1)
  1. REVATIO [Suspect]
     Active Substance: SILDENAFIL CITRATE
     Indication: PULMONARY HYPERTENSION
     Dosage: 20 MG, 3X/DAY
     Route: 048

REACTIONS (11)
  - Disease progression [Fatal]
  - Chronic obstructive pulmonary disease [Fatal]
  - Pneumonia aspiration [Unknown]
  - Weight decreased [Unknown]
  - Decreased appetite [Unknown]
  - Hypertension [Unknown]
  - Pulmonary hypertension [Fatal]
  - Respiratory failure [Unknown]
  - Pleural effusion [Unknown]
  - Dysphagia [Unknown]
  - Dysgeusia [Unknown]

NARRATIVE: CASE EVENT DATE: 201708
